FAERS Safety Report 7154670 (Version 17)
Quarter: 2013Q3

REPORT INFORMATION
  Report Type: Spontaneous
  Country: US (occurrence: US)
  Receive Date: 20091021
  Receipt Date: 20130710
  Transmission Date: 20140515
  Serious: Yes (Other)
  Sender: FDA-Public Use
  Company Number: PHEH2009US13608

PATIENT
  Sex: Male
  Weight: 70 kg

DRUGS (18)
  1. ZOMETA [Suspect]
     Indication: PROSTATE CANCER
     Dosage: 4 MG, MONTHLY
     Route: 042
     Dates: start: 200412, end: 200803
  2. ORAL CONTRACEPTIVE NOS [Suspect]
  3. CASODEX [Concomitant]
  4. FLOMAX [Concomitant]
  5. XANAX [Concomitant]
  6. ACTONEL [Concomitant]
  7. CALCIUM CARBONATE [Concomitant]
  8. VICODIN [Concomitant]
  9. NORCO [Concomitant]
  10. IBUPROFEN [Concomitant]
  11. SOMA [Concomitant]
  12. CORTISONE [Concomitant]
  13. CHEMOTHERAPEUTICS NOS [Concomitant]
  14. LUPRON [Concomitant]
  15. WELLBUTRIN [Concomitant]
  16. VERSED [Concomitant]
  17. DEMEROL [Concomitant]
  18. KETOCONAZOLE [Concomitant]

REACTIONS (79)
  - Osteonecrosis of jaw [Unknown]
  - Injury [Unknown]
  - Disability [Unknown]
  - Pain [Unknown]
  - Anxiety [Unknown]
  - Anhedonia [Unknown]
  - Tooth loss [Unknown]
  - Exposed bone in jaw [Unknown]
  - Loose tooth [Unknown]
  - Gingivitis [Unknown]
  - Mastication disorder [Unknown]
  - Haematuria [Unknown]
  - Capillary disorder [Unknown]
  - Obstructive airways disorder [Unknown]
  - Osteoporosis [Unknown]
  - Metastases to bone [Unknown]
  - Musculoskeletal pain [Unknown]
  - Neck pain [Unknown]
  - Intervertebral disc degeneration [Unknown]
  - Renal cyst [Unknown]
  - Sinusitis [Unknown]
  - Stress fracture [Unknown]
  - Osteoarthritis [Unknown]
  - Mitral valve prolapse [Unknown]
  - Renal failure [Unknown]
  - Rectal haemorrhage [Unknown]
  - Sciatica [Unknown]
  - Urinary incontinence [Recovered/Resolved]
  - Dyspepsia [Unknown]
  - Lung infection [Unknown]
  - Seasonal allergy [Unknown]
  - Primary sequestrum [Unknown]
  - Acute myocardial infarction [Unknown]
  - Chest pain [Unknown]
  - Coronary artery disease [Unknown]
  - Hypercholesterolaemia [Unknown]
  - Dysthymic disorder [Unknown]
  - Hypertension [Unknown]
  - Arteriosclerosis [Unknown]
  - Oedema [Unknown]
  - Mucous stools [Unknown]
  - Constipation [Unknown]
  - Dyspnoea [Unknown]
  - Bacterial disease carrier [Unknown]
  - Abscess [Unknown]
  - Breast mass [Recovering/Resolving]
  - Aphonia [Unknown]
  - Dysgeusia [Unknown]
  - Paraesthesia [Unknown]
  - Pleural effusion [Unknown]
  - Cardiac failure congestive [Unknown]
  - Thyroid neoplasm [Unknown]
  - Hepatic lesion [Unknown]
  - Cardiomegaly [Unknown]
  - Aortic dilatation [Unknown]
  - Hepatic cyst [Unknown]
  - Atelectasis [Unknown]
  - Pulmonary mass [Unknown]
  - Abdominal pain [Unknown]
  - Metastases to lung [Unknown]
  - Aortic arteriosclerosis [Unknown]
  - Aortic calcification [Unknown]
  - Pulmonary fibrosis [Unknown]
  - Arteriosclerosis coronary artery [Unknown]
  - Eye swelling [Unknown]
  - Eye pain [Unknown]
  - Conjunctivitis bacterial [Unknown]
  - Fistula [Unknown]
  - Arthropathy [Unknown]
  - Lung infiltration [Unknown]
  - Emphysema [Unknown]
  - Pulmonary granuloma [Unknown]
  - Pulmonary calcification [Unknown]
  - Arterial thrombosis [Unknown]
  - Nodule [Unknown]
  - Vertebral foraminal stenosis [Unknown]
  - Radiculopathy [Unknown]
  - Pain in extremity [Unknown]
  - Arthralgia [Unknown]
